FAERS Safety Report 12225184 (Version 1)
Quarter: 2016Q1

REPORT INFORMATION
  Report Type: Spontaneous
  Country: US (occurrence: US)
  Receive Date: 20160331
  Receipt Date: 20160331
  Transmission Date: 20160526
  Serious: No
  Sender: FDA-Public Use
  Company Number: US-BAYER-2016-055168

PATIENT
  Age: 77 Year
  Sex: Female

DRUGS (3)
  1. FINACEA [Suspect]
     Active Substance: AZELAIC ACID
     Indication: DERMATITIS
     Dosage: UNK
     Route: 061
     Dates: start: 20160317
  2. FINACEA [Suspect]
     Active Substance: AZELAIC ACID
     Indication: ROSACEA
  3. FINACEA [Suspect]
     Active Substance: AZELAIC ACID
     Indication: SEBORRHOEIC DERMATITIS

REACTIONS (3)
  - Burning sensation [Not Recovered/Not Resolved]
  - Application site inflammation [Not Recovered/Not Resolved]
  - Application site erythema [Not Recovered/Not Resolved]

NARRATIVE: CASE EVENT DATE: 20160317
